FAERS Safety Report 9475532 (Version 1)
Quarter: 2013Q3

REPORT INFORMATION
  Report Type: Spontaneous
  Country: US (occurrence: US)
  Receive Date: 20130826
  Receipt Date: 20130826
  Transmission Date: 20140515
  Serious: No
  Sender: FDA-Public Use
  Company Number: US-009507513-1308USA007936

PATIENT
  Sex: Female

DRUGS (4)
  1. COSOPT [Suspect]
     Dosage: 2 DF, BID,ONE DROP IN EACH EYE, TWICE DAILY
     Route: 047
  2. CELEXA [Concomitant]
     Dosage: UNK
  3. WELLBUTRIN [Concomitant]
     Dosage: UNK
  4. LITHIUM [Concomitant]
     Dosage: UNK

REACTIONS (3)
  - Eye irritation [Recovered/Resolved]
  - Product quality issue [Unknown]
  - Product package associated injury [Recovered/Resolved]
